FAERS Safety Report 18901065 (Version 3)
Quarter: 2021Q2

REPORT INFORMATION
  Report Type: Spontaneous
  Country: JP (occurrence: JP)
  Receive Date: 20210217
  Receipt Date: 20210410
  Transmission Date: 20210717
  Serious: Yes (Other)
  Sender: FDA-Public Use
  Company Number: JP-ROCHE-2771101

PATIENT
  Age: 51 Year
  Sex: Male
  Weight: 66 kg

DRUGS (7)
  1. ACTEMRA [Suspect]
     Active Substance: TOCILIZUMAB
     Indication: CASTLEMAN^S DISEASE
     Route: 041
     Dates: start: 20200824
  2. RINDERON [Concomitant]
     Dosage: DOSAGE IS UNCERTAIN.
     Route: 065
     Dates: start: 202008, end: 20201214
  3. VALSARTAN. [Concomitant]
     Active Substance: VALSARTAN
     Dosage: DOSAGE IS UNCERTAIN.
     Route: 065
     Dates: start: 20210125
  4. ACTEMRA [Suspect]
     Active Substance: TOCILIZUMAB
     Indication: CASTLEMAN^S DISEASE
     Route: 058
     Dates: start: 20210208
  5. RINDERON [Concomitant]
     Dosage: DOSAGE IS UNCERTAIN.
     Route: 065
     Dates: end: 202008
  6. TRIAZOLAM. [Concomitant]
     Active Substance: TRIAZOLAM
     Dosage: DOSAGE IS UNCERTAIN.
     Route: 065
  7. RINDERON [Concomitant]
     Indication: CASTLEMAN^S DISEASE
     Dosage: DOSAGE IS UNCERTAIN.
     Route: 065
     Dates: start: 2016

REACTIONS (3)
  - Secondary adrenocortical insufficiency [Unknown]
  - Liver disorder [Not Recovered/Not Resolved]
  - Off label use [Unknown]

NARRATIVE: CASE EVENT DATE: 20201109
